FAERS Safety Report 12898323 (Version 1)
Quarter: 2016Q4

REPORT INFORMATION
  Report Type: Spontaneous
  Country: US (occurrence: US)
  Receive Date: 20161031
  Receipt Date: 20161031
  Transmission Date: 20170207
  Serious: No
  Sender: FDA-Public Use
  Company Number: US-MISSION PHARMACAL COMPANY-1059109

PATIENT
  Age: 91 Year
  Sex: Female

DRUGS (1)
  1. THIOLA [Suspect]
     Active Substance: TIOPRONIN
     Indication: CYSTINURIA
     Route: 065
     Dates: start: 20161013

REACTIONS (7)
  - Asthenia [Unknown]
  - Posture abnormal [Unknown]
  - Dementia Alzheimer^s type [None]
  - Flat affect [Unknown]
  - Reduced facial expression [None]
  - Fatigue [Unknown]
  - Altered visual depth perception [Unknown]
